FAERS Safety Report 17012546 (Version 1)
Quarter: 2019Q4

REPORT INFORMATION
  Report Type: Spontaneous
  Country: GB (occurrence: GB)
  Receive Date: 20191109
  Receipt Date: 20191109
  Transmission Date: 20200122
  Serious: Yes (Other)
  Sender: FDA-Public Use
  Company Number: GB-009507513-1911GBR001585

PATIENT
  Age: 63 Year
  Sex: Female
  Weight: 71 kg

DRUGS (3)
  1. LOSARTAN POTASSIUM. [Suspect]
     Active Substance: LOSARTAN POTASSIUM
     Route: 048
     Dates: start: 20180326, end: 20180810
  2. FENBID [Concomitant]
     Active Substance: IBUPROFEN
     Dosage: FENBID FORTE; APPLY TO AFFECTED AREAS
     Dates: start: 20180518
  3. LISINOPRIL. [Concomitant]
     Active Substance: LISINOPRIL
     Dates: start: 20180810

REACTIONS (4)
  - Blood creatine phosphokinase increased [Unknown]
  - Muscle spasms [Unknown]
  - Blood potassium increased [Unknown]
  - Rhabdomyolysis [Recovering/Resolving]

NARRATIVE: CASE EVENT DATE: 20180807
